FAERS Safety Report 10882026 (Version 1)
Quarter: 2015Q1

REPORT INFORMATION
  Report Type: Spontaneous
  Country: US (occurrence: None)
  Receive Date: 20150226
  Receipt Date: 20150226
  Transmission Date: 20150721
  Serious: Yes (Hospitalization)
  Sender: FDA-Public Use
  Company Number: None

PATIENT
  Age: 71 Year
  Sex: Female
  Weight: 69 kg

DRUGS (1)
  1. TAXOL [Suspect]
     Active Substance: PACLITAXEL
     Dates: start: 20140218

REACTIONS (6)
  - Vomiting [None]
  - Chest pain [None]
  - Dizziness [None]
  - Loss of consciousness [None]
  - Hyperhidrosis [None]
  - Pleural effusion [None]

NARRATIVE: CASE EVENT DATE: 20140518
